FAERS Safety Report 18106332 (Version 1)
Quarter: 2020Q3

REPORT INFORMATION
  Report Type: Report from Study
  Country: None (occurrence: IT)
  Receive Date: 20200803
  Receipt Date: 20200803
  Transmission Date: 20201103
  Serious: Yes (Death)
  Sender: FDA-Public Use
  Company Number: IT-ABBVIE-20P-083-3505977-00

PATIENT
  Age: 59 Year
  Sex: Male

DRUGS (7)
  1. VENETOCLAX. [Suspect]
     Active Substance: VENETOCLAX
     Route: 048
     Dates: start: 20200416, end: 20200506
  2. VORICONAZOLE. [Concomitant]
     Active Substance: VORICONAZOLE
     Indication: PRODUCT USED FOR UNKNOWN INDICATION
     Dates: start: 20200626
  3. VENETOCLAX. [Suspect]
     Active Substance: VENETOCLAX
     Route: 048
     Dates: start: 20200522
  4. TIGECYCLINE. [Concomitant]
     Active Substance: TIGECYCLINE
     Indication: PRODUCT USED FOR UNKNOWN INDICATION
     Dates: start: 20200622
  5. VENETOCLAX. [Suspect]
     Active Substance: VENETOCLAX
     Indication: ACUTE MYELOID LEUKAEMIA
     Dosage: MAXIMUM DOSE: 600 MG
     Route: 048
     Dates: start: 20200410, end: 20200415
  6. CEFTAZIDIM AVIBACTAM [Concomitant]
     Indication: PRODUCT USED FOR UNKNOWN INDICATION
  7. TIGECYCLINE. [Concomitant]
     Active Substance: TIGECYCLINE
     Indication: PRODUCT USED FOR UNKNOWN INDICATION

REACTIONS (5)
  - Haemorrhage [Fatal]
  - Bronchopulmonary aspergillosis [Fatal]
  - Off label use [Unknown]
  - Respiratory failure [Fatal]
  - Death [Fatal]

NARRATIVE: CASE EVENT DATE: 20200410
